FAERS Safety Report 6233246-0 (Version None)
Quarter: 2009Q2

REPORT INFORMATION
  Report Type: 
  Country: None (occurrence: None)
  Receive Date: 20090612
  Receipt Date: 20090601
  Transmission Date: 20091009
  Serious: Yes (Other)
  Sender: FDA-Public Use
  Company Number: 234315K09USA

PATIENT
  Age: 53 Year
  Sex: Female

DRUGS (10)
  1. REBIF [Suspect]
     Indication: MULTIPLE SCLEROSIS
     Dosage: 44 MCG, 3 IN 1 WEEKS, SUBCUTANEOUS
     Route: 058
     Dates: start: 20080725, end: 20090301
  2. REBIF [Suspect]
     Indication: MULTIPLE SCLEROSIS
     Dosage: 44 MCG, 3 IN 1 WEEKS, SUBCUTANEOUS
     Route: 058
     Dates: start: 20090601
  3. SOLU-MEDROL [Concomitant]
  4. DAYQUIL (BENADRYL COLD AND FLU) [Concomitant]
  5. FENTANYL [Concomitant]
  6. FIORICET (AXOTAL) [Concomitant]
  7. PROVIGIL [Concomitant]
  8. VALIUM [Concomitant]
  9. FIORINAL (FIORINAL) [Concomitant]
  10. LORTAB (VICODIN) [Concomitant]

REACTIONS (6)
  - BREAST CANCER FEMALE [None]
  - CATHETER RELATED COMPLICATION [None]
  - MUSCULOSKELETAL PAIN [None]
  - OEDEMA PERIPHERAL [None]
  - PAIN IN EXTREMITY [None]
  - THROMBOSIS [None]
